FAERS Safety Report 13984719 (Version 3)
Quarter: 2017Q4

REPORT INFORMATION
  Report Type: Report from Study
  Country: AU (occurrence: AU)
  Receive Date: 20170918
  Receipt Date: 20171218
  Transmission Date: 20180321
  Serious: Yes (Other)
  Sender: FDA-Public Use
  Company Number: AU-REGENERON PHARMACEUTICALS, INC.-2017-22185

PATIENT

DRUGS (1)
  1. EYLEA [Suspect]
     Active Substance: AFLIBERCEPT
     Indication: NEOVASCULAR AGE-RELATED MACULAR DEGENERATION
     Dosage: OD EVERY 5 WEEKS. TOTAL DOSES AND LAST DOSE PRIOR THE EVENT WERE NOT PROVIDED
     Route: 031

REACTIONS (3)
  - Retinal haemorrhage [Unknown]
  - Drug ineffective [Unknown]
  - Visual impairment [Not Recovered/Not Resolved]
